FAERS Safety Report 19987677 (Version 3)
Quarter: 2021Q4

REPORT INFORMATION
  Report Type: Spontaneous
  Country: FI (occurrence: FI)
  Receive Date: 20211022
  Receipt Date: 20211116
  Transmission Date: 20220303
  Serious: No
  Sender: FDA-Public Use
  Company Number: FI-BAYER-2021P000066

PATIENT
  Age: 47 Year
  Sex: Female

DRUGS (1)
  1. MIRENA [Suspect]
     Active Substance: LEVONORGESTREL
     Dosage: 20?G/DAY
     Route: 015
     Dates: start: 20130909, end: 20211014

REACTIONS (3)
  - Device physical property issue [Recovered/Resolved]
  - Complication of device removal [Recovered/Resolved]
  - Device use issue [None]

NARRATIVE: CASE EVENT DATE: 20211014
